FAERS Safety Report 8507127-3 (Version None)
Quarter: 2012Q3

REPORT INFORMATION
  Report Type: 
  Country: None (occurrence: None)
  Receive Date: 20120712
  Receipt Date: 20120709
  Transmission Date: 20120928
  Serious: Yes (Death, Hospitalization)
  Sender: FDA-Public Use
  Company Number: US-009507513-2012SP011808

PATIENT

DRUGS (1)
  1. NUVARING [Suspect]
     Indication: AMENORRHOEA
     Dates: start: 20090101, end: 20100301

REACTIONS (12)
  - MIGRAINE [None]
  - OFF LABEL USE [None]
  - COGNITIVE DISORDER [None]
  - LYMPHADENOPATHY [None]
  - TRANSVERSE SINUS THROMBOSIS [None]
  - CARPAL TUNNEL SYNDROME [None]
  - MENTAL DISORDER [None]
  - INTRACRANIAL VENOUS SINUS THROMBOSIS [None]
  - ASTHMA [None]
  - EMOTIONAL DISORDER [None]
  - JUGULAR VEIN THROMBOSIS [None]
  - MULTIPLE INJURIES [None]
